FAERS Safety Report 14877669 (Version 1)
Quarter: 2018Q2

REPORT INFORMATION
  Report Type: Spontaneous
  Country: JP (occurrence: JP)
  Receive Date: 20180510
  Receipt Date: 20180510
  Transmission Date: 20180720
  Serious: Yes (Other)
  Sender: FDA-Public Use
  Company Number: JP-BIO-PHARM, INC -2047588

PATIENT
  Age: 68 Year
  Sex: Male

DRUGS (1)
  1. RISPERIDONE. [Suspect]
     Active Substance: RISPERIDONE

REACTIONS (2)
  - Hypothyroidism [Recovered/Resolved]
  - Myxoedema coma [None]
